FAERS Safety Report 7141429-0 (Version None)
Quarter: 2010Q4

REPORT INFORMATION
  Report Type: 
  Country: None (occurrence: None)
  Receive Date: 20101122
  Receipt Date: 20100903
  Transmission Date: 20110411
  Serious: Yes (Other)
  Sender: FDA-Public Use
  Company Number: UK-ACCORD-003347

PATIENT
  Age: 24 Year
  Sex: Female

DRUGS (4)
  1. MYCOPHENOLATE MOFETIL [Suspect]
     Indication: IMMUNOSUPPRESSION
  2. CYCLOSPORINE [Suspect]
     Indication: IMMUNOSUPPRESSION
  3. PREDNISOLONE [Concomitant]
  4. ANTI-THYMOCYTE GLOBULIN NOS [Concomitant]

REACTIONS (2)
  - ADRENAL INSUFFICIENCY [None]
  - CYTOMEGALOVIRUS INFECTION [None]
